FAERS Safety Report 26022599 (Version 1)
Quarter: 2025Q4

REPORT INFORMATION
  Report Type: Spontaneous
  Country: US (occurrence: US)
  Receive Date: 20251110
  Receipt Date: 20251110
  Transmission Date: 20260118
  Serious: Yes (Disabling, Other)
  Sender: NOVO NORDISK
  Company Number: US-NOVOPROD-720387

PATIENT
  Age: 64 Year
  Sex: Female

DRUGS (2)
  1. NOVOLOG [Suspect]
     Active Substance: INSULIN ASPART
     Indication: Diabetes mellitus
     Dosage: 15 UNITS PLUS SLIDING SCALE
     Route: 058
  2. HUMULIN N [Suspect]
     Active Substance: INSULIN HUMAN
     Indication: Diabetes mellitus
     Dosage: UNK
     Route: 058

REACTIONS (6)
  - Disability [Unknown]
  - Cardiac operation [Recovered/Resolved]
  - Dawn phenomenon [Not Recovered/Not Resolved]
  - Blood glucose decreased [Recovered/Resolved]
  - Product storage error [Unknown]
  - Product use issue [Unknown]
